FAERS Safety Report 6358151-0 (Version None)
Quarter: 2009Q3

REPORT INFORMATION
  Report Type: 
  Country: None (occurrence: None)
  Receive Date: 20090911
  Receipt Date: 20090903
  Transmission Date: 20100115
  Serious: Yes (Life-Threatening)
  Sender: FDA-Public Use
  Company Number: THQ2009A04274

PATIENT
  Age: 74 Year
  Sex: Male

DRUGS (6)
  1. LANSOPRAZOLE [Suspect]
     Indication: DRUG USE FOR UNKNOWN INDICATION
  2. TEICOPLANIN [Suspect]
     Indication: ENDOCARDITIS
     Dosage: 1.2 GM INTRAVENOUS
     Route: 042
     Dates: start: 20090205, end: 20090210
  3. DIGOXIN [Concomitant]
  4. GENTAMICIN [Concomitant]
  5. PRAVASTATIN [Concomitant]
  6. SERETIDE (SALMETEROL, FLUTICASONE) [Concomitant]

REACTIONS (4)
  - HAEMOGLOBIN DECREASED [None]
  - NEUTROPENIA [None]
  - SEPSIS [None]
  - WHITE BLOOD CELL COUNT DECREASED [None]
